FAERS Safety Report 9861359 (Version 1)
Quarter: 2014Q1

REPORT INFORMATION
  Report Type: Spontaneous
  Country: US (occurrence: US)
  Receive Date: 20140203
  Receipt Date: 20140203
  Transmission Date: 20141002
  Serious: No
  Sender: FDA-Public Use
  Company Number: US-009507513-1402USA000143

PATIENT
  Sex: Male

DRUGS (2)
  1. FINASTERIDE [Suspect]
     Indication: PROSTATOMEGALY
     Dosage: UNK
     Route: 048
  2. PROSCAR [Suspect]
     Indication: PROSTATOMEGALY
     Route: 048

REACTIONS (1)
  - Pollakiuria [Not Recovered/Not Resolved]
